FAERS Safety Report 15934618 (Version 2)
Quarter: 2019Q1

REPORT INFORMATION
  Report Type: Spontaneous
  Country: FR (occurrence: FR)
  Receive Date: 20190207
  Receipt Date: 20190215
  Transmission Date: 20190417
  Serious: Yes (Other)
  Sender: FDA-Public Use
  Company Number: FR-ASCEND THERAPEUTICS-2062310

PATIENT
  Age: 38 Year
  Sex: Female

DRUGS (3)
  1. LUTERAN(CHLORMADINONE ACETATE)?INDICATIONS FOR USE: POLYCYSTIC OVARIAN [Suspect]
     Active Substance: CHLORMADINONE ACETATE
     Route: 048
     Dates: start: 1991, end: 2003
  2. ANDROCUR (CYPROTERONE ACETATE)?INDICATION FOR USE: POLYCYSTIC OVARIAN [Suspect]
     Active Substance: CYPROTERONE ACETATE
     Route: 048
     Dates: start: 20030301, end: 20130915
  3. ESTROGEL [Suspect]
     Active Substance: ESTRADIOL
     Indication: POLYCYSTIC OVARIES
     Route: 003
     Dates: start: 20130301, end: 20130915

REACTIONS (2)
  - Meningioma [Not Recovered/Not Resolved]
  - Diplopia [Recovered/Resolved]

NARRATIVE: CASE EVENT DATE: 2013
